FAERS Safety Report 6579270-X (Version None)
Quarter: 2010Q1

REPORT INFORMATION
  Report Type: 
  Country: None (occurrence: None)
  Receive Date: 20100212
  Receipt Date: 20100211
  Transmission Date: 20100710
  Serious: Yes (Hospitalization)
  Sender: FDA-Public Use
  Company Number: PL-EISAI INC.-E2090-00963-CLI-PL

PATIENT
  Sex: Male
  Weight: 47 kg

DRUGS (7)
  1. ZONISAMIDE [Suspect]
     Indication: EPILEPSY
     Route: 048
     Dates: start: 20090311, end: 20100112
  2. ZONISAMIDE [Suspect]
     Route: 048
     Dates: start: 20100113, end: 20100119
  3. ZONISAMIDE [Suspect]
     Route: 048
     Dates: start: 20100120, end: 20100126
  4. ZONISAMIDE [Suspect]
     Route: 048
     Dates: start: 20100127, end: 20100202
  5. ZONISAMIDE [Suspect]
     Route: 048
     Dates: start: 20100203, end: 20100209
  6. LEVETIRACETAM [Concomitant]
     Indication: EPILEPSY
     Dosage: 1750 BID (750MG-0-1000MG)
     Route: 048
     Dates: start: 20080101
  7. OXCARBAZEPINE [Concomitant]
     Indication: EPILEPSY
     Route: 048
     Dates: start: 20080101

REACTIONS (1)
  - RENAL COLIC [None]
